FAERS Safety Report 8163788-2 (Version None)
Quarter: 2012Q1

REPORT INFORMATION
  Report Type: 
  Country: None (occurrence: None)
  Receive Date: 20120224
  Receipt Date: 20120216
  Transmission Date: 20120608
  Serious: Yes (Hospitalization)
  Sender: FDA-Public Use
  Company Number: PHHY2012EC015795

PATIENT
  Sex: Female

DRUGS (1)
  1. DIOVAN HCT [Suspect]
     Indication: HYPERTENSION
     Dosage: 1  TABLET DAILY (160/12.5MG )
     Route: 048
     Dates: start: 20070101

REACTIONS (2)
  - LUMBAR HERNIA [None]
  - PAIN [None]
